FAERS Safety Report 8700021 (Version 2)
Quarter: 2013Q4

REPORT INFORMATION
  Report Type: Spontaneous
  Country: BR (occurrence: BR)
  Receive Date: 20120802
  Receipt Date: 20131031
  Transmission Date: 20140711
  Serious: Yes (Other)
  Sender: FDA-Public Use
  Company Number: BR-009507513-1208BRA000170

PATIENT
  Sex: Female

DRUGS (2)
  1. OVESTRION [Suspect]
     Dosage: UNK
     Route: 067
  2. OVESTRION [Suspect]

REACTIONS (3)
  - Breast cancer female [Unknown]
  - Neoplasm malignant [Not Recovered/Not Resolved]
  - Contraindication to medical treatment [Not Recovered/Not Resolved]
